FAERS Safety Report 4892738-7 (Version None)
Quarter: 2006Q1

REPORT INFORMATION
  Report Type: 
  Country: None (occurrence: None)
  Receive Date: 20060123
  Receipt Date: 20060123
  Transmission Date: 20060701
  Serious: Yes (Hospitalization)
  Sender: FDA-Public Use
  Company Number: None

PATIENT

DRUGS (2)
  1. STAVUDINE [Suspect]
  2. DIDANOSINE [Suspect]

REACTIONS (1)
  - PANCREATITIS [None]
